FAERS Safety Report 25101159 (Version 1)
Quarter: 2025Q1

REPORT INFORMATION
  Report Type: Spontaneous
  Country: US (occurrence: US)
  Receive Date: 20250320
  Receipt Date: 20250320
  Transmission Date: 20250409
  Serious: No
  Sender: CIPLA
  Company Number: US-CIPLA LTD.-2024US08920

PATIENT

DRUGS (3)
  1. TESTOSTERONE [Suspect]
     Active Substance: TESTOSTERONE
     Indication: Product used for unknown indication
     Route: 061
     Dates: start: 202407, end: 2024
  2. TESTOSTERONE [Suspect]
     Active Substance: TESTOSTERONE
     Route: 061
     Dates: start: 20240809
  3. TESTOSTERONE [Concomitant]
     Active Substance: TESTOSTERONE
     Indication: Product used for unknown indication
     Route: 065

REACTIONS (5)
  - Accidental exposure to product [Unknown]
  - Device difficult to use [Unknown]
  - Incorrect dose administered by device [Unknown]
  - Product substitution issue [Unknown]
  - Device issue [Unknown]

NARRATIVE: CASE EVENT DATE: 20240701
